FAERS Safety Report 15575449 (Version 1)
Quarter: 2018Q4

REPORT INFORMATION
  Report Type: Spontaneous
  Country: GB (occurrence: GB)
  Receive Date: 20181101
  Receipt Date: 20181101
  Transmission Date: 20190205
  Serious: Yes (Other)
  Sender: FDA-Public Use
  Company Number: PHHY2018GB140178

PATIENT
  Age: 53 Year
  Sex: Female

DRUGS (2)
  1. THIOPENTONE [Suspect]
     Active Substance: THIOPENTAL SODIUM
     Indication: INDUCTION OF ANAESTHESIA
     Route: 065
  2. SUCCINYLCHOLINE CHLORIDE. [Suspect]
     Active Substance: SUCCINYLCHOLINE CHLORIDE
     Indication: INDUCTION OF ANAESTHESIA
     Route: 065

REACTIONS (3)
  - Depressed level of consciousness [Unknown]
  - Circulatory collapse [Unknown]
  - Hypotension [Unknown]
